FAERS Safety Report 9305714 (Version 1)
Quarter: 2013Q2

REPORT INFORMATION
  Report Type: Spontaneous
  Country: US (occurrence: None)
  Receive Date: 20130522
  Receipt Date: 20130522
  Transmission Date: 20140414
  Serious: No
  Sender: FDA-Public Use
  Company Number: None

PATIENT
  Sex: Female
  Weight: 106.6 kg

DRUGS (4)
  1. LORATADINE [Suspect]
     Indication: HYPERSENSITIVITY
     Dates: start: 20130319, end: 20130424
  2. NAPROXEN [Suspect]
     Indication: ARTHRITIS
     Dates: start: 20130319, end: 20130424
  3. FLUTICASONE [Suspect]
     Indication: HYPERSENSITIVITY
     Dosage: 2 SPRAYS ONCE A DAY
     Dates: start: 20130329, end: 20130424
  4. FERROUS SULFATE [Suspect]
     Dates: start: 20130319, end: 20130424

REACTIONS (7)
  - Visual impairment [None]
  - Somnolence [None]
  - Impaired driving ability [None]
  - Headache [None]
  - Dyspnoea [None]
  - Confusional state [None]
  - Feeling abnormal [None]
